FAERS Safety Report 25816298 (Version 2)
Quarter: 2025Q4

REPORT INFORMATION
  Report Type: Report from Study
  Country: CA (occurrence: CA)
  Receive Date: 20250918
  Receipt Date: 20251110
  Transmission Date: 20260117
  Serious: Yes (Other)
  Sender: ASTELLAS
  Company Number: CA-ASTELLAS-2025-AER-050277

PATIENT
  Age: 79 Year
  Sex: Male

DRUGS (12)
  1. ENZALUTAMIDE [Suspect]
     Active Substance: ENZALUTAMIDE
     Indication: Product used for unknown indication
     Dosage: 4 A DAY
     Route: 065
     Dates: start: 201905
  2. ENZALUTAMIDE [Suspect]
     Active Substance: ENZALUTAMIDE
     Dosage: 2 A DAY
     Route: 065
  3. CASODEX [Suspect]
     Active Substance: BICALUTAMIDE
     Indication: Prostatic specific antigen increased
     Dosage: UNKNOWN DOSE AND FREQUENCY
     Route: 065
     Dates: start: 2018
  4. CASODEX [Suspect]
     Active Substance: BICALUTAMIDE
     Dosage: UNKNOWN DOSE AND FREQUENCY
     Route: 065
     Dates: start: 2019
  5. ELIGARD [Suspect]
     Active Substance: LEUPROLIDE ACETATE
     Indication: Prostate cancer
     Dosage: POWDER FOR SUSPENSION, SUSTAINED-RELEASE
     Route: 058
     Dates: start: 20161222
  6. ELIGARD [Suspect]
     Active Substance: LEUPROLIDE ACETATE
     Dosage: POWDER FOR SUSPENSION, SUSTAINED-RELEASE
     Route: 058
     Dates: start: 20210805
  7. ELIGARD [Suspect]
     Active Substance: LEUPROLIDE ACETATE
     Dosage: POWDER FOR SUSPENSION, SUSTAINED-RELEASE
     Route: 058
     Dates: start: 20220707
  8. ELIGARD [Suspect]
     Active Substance: LEUPROLIDE ACETATE
     Dosage: POWDER FOR SUSPENSION, SUSTAINED-RELEASE
     Route: 058
     Dates: start: 20230608
  9. ELIGARD [Suspect]
     Active Substance: LEUPROLIDE ACETATE
     Dosage: POWDER FOR SUSPENSION, SUSTAINED-RELEASE
     Route: 058
     Dates: start: 20231123
  10. ELIGARD [Suspect]
     Active Substance: LEUPROLIDE ACETATE
     Dosage: POWDER FOR SUSPENSION, SUSTAINED-RELEASE
     Route: 058
     Dates: start: 20240509
  11. ELIGARD [Suspect]
     Active Substance: LEUPROLIDE ACETATE
     Dosage: POWDER FOR SUSPENSION, SUSTAINED-RELEASE
     Route: 058
     Dates: start: 20241030
  12. ELIGARD [Suspect]
     Active Substance: LEUPROLIDE ACETATE
     Dosage: POWDER FOR SUSPENSION, SUSTAINED-RELEASE
     Route: 058
     Dates: start: 20250417

REACTIONS (33)
  - Hypertensive crisis [Unknown]
  - Lymphoma [Unknown]
  - Metastases to bone [Not Recovered/Not Resolved]
  - Deafness [Unknown]
  - Haematological neoplasm [Unknown]
  - Cachexia [Unknown]
  - Injection site pain [Recovered/Resolved]
  - Rash [Recovered/Resolved]
  - Facial pain [Unknown]
  - Pustule [Unknown]
  - Ear pain [Unknown]
  - Dizziness [Unknown]
  - Abdominal pain [Not Recovered/Not Resolved]
  - Sleep disorder due to a general medical condition [Not Recovered/Not Resolved]
  - Bronchitis [Recovering/Resolving]
  - Asthenia [Unknown]
  - Decreased appetite [Recovered/Resolved]
  - Hot flush [Unknown]
  - Nausea [Unknown]
  - Weight decreased [Unknown]
  - Prostatic specific antigen increased [Not Recovered/Not Resolved]
  - Musculoskeletal stiffness [Not Recovered/Not Resolved]
  - Peripheral swelling [Not Recovered/Not Resolved]
  - Hypoaesthesia [Not Recovered/Not Resolved]
  - Splenomegaly [Recovering/Resolving]
  - Abdominal pain upper [Recovered/Resolved]
  - Diarrhoea [Unknown]
  - Anaemia [Unknown]
  - Malaise [Unknown]
  - Fatigue [Unknown]
  - Dyspnoea [Unknown]
  - Herpes zoster [Unknown]
  - Injection site mass [Not Recovered/Not Resolved]

NARRATIVE: CASE EVENT DATE: 20200101
